FAERS Safety Report 12766930 (Version 1)
Quarter: 2016Q3

REPORT INFORMATION
  Report Type: Spontaneous
  Country: US (occurrence: US)
  Receive Date: 20160921
  Receipt Date: 20160921
  Transmission Date: 20161109
  Serious: Yes (Disabling)
  Sender: FDA-Public Use
  Company Number: US-SA-2016SA173382

PATIENT
  Sex: Male

DRUGS (13)
  1. SOLOSTAR [Concomitant]
     Active Substance: DEVICE
     Dates: start: 2016
  2. LANTUS SOLOSTAR [Suspect]
     Active Substance: INSULIN GLARGINE
     Indication: DIABETES MELLITUS
     Route: 065
     Dates: end: 2016
  3. LANTUS SOLOSTAR [Suspect]
     Active Substance: INSULIN GLARGINE
     Indication: DIABETES MELLITUS
     Route: 065
     Dates: start: 2016
  4. SOLOSTAR [Concomitant]
     Active Substance: DEVICE
     Dates: end: 2016
  5. METFORMIN [Concomitant]
     Active Substance: METFORMIN HYDROCHLORIDE
  6. LANTUS SOLOSTAR [Suspect]
     Active Substance: INSULIN GLARGINE
     Indication: DIABETES MELLITUS
     Route: 065
     Dates: end: 2016
  7. LANTUS SOLOSTAR [Suspect]
     Active Substance: INSULIN GLARGINE
     Indication: DIABETES MELLITUS
     Route: 065
     Dates: end: 2016
  8. LANTUS SOLOSTAR [Suspect]
     Active Substance: INSULIN GLARGINE
     Indication: DIABETES MELLITUS
     Route: 065
     Dates: start: 2016
  9. SOLOSTAR [Concomitant]
     Active Substance: DEVICE
     Dates: start: 2016
  10. SOLOSTAR [Concomitant]
     Active Substance: DEVICE
     Dates: end: 2016
  11. LANTUS SOLOSTAR [Suspect]
     Active Substance: INSULIN GLARGINE
     Indication: DIABETES MELLITUS
     Route: 065
     Dates: start: 2016
  12. SOLOSTAR [Concomitant]
     Active Substance: DEVICE
     Dates: end: 2016
  13. SOLOSTAR [Concomitant]
     Active Substance: DEVICE
     Dates: start: 2016

REACTIONS (3)
  - Disability [Unknown]
  - Product use issue [Unknown]
  - Stress [Unknown]

NARRATIVE: CASE EVENT DATE: 2016
